FAERS Safety Report 5707920-6 (Version None)
Quarter: 2008Q2

REPORT INFORMATION
  Report Type: 
  Country: None (occurrence: None)
  Receive Date: 20080417
  Receipt Date: 20080411
  Transmission Date: 20081010
  Serious: Yes (Hospitalization)
  Sender: FDA-Public Use
  Company Number: VE-BAYER-200813079LA

PATIENT
  Age: 25 Year
  Sex: Male
  Weight: 28 kg

DRUGS (1)
  1. SORAFENIB [Suspect]
     Indication: HEPATIC NEOPLASM MALIGNANT
     Dosage: TOTAL DAILY DOSE: 800 MG
     Route: 048
     Dates: start: 20080331, end: 20080403

REACTIONS (2)
  - ABDOMINAL PAIN [None]
  - GASTROINTESTINAL HYPOMOTILITY [None]
